FAERS Safety Report 7396520-0 (Version None)
Quarter: 2011Q2

REPORT INFORMATION
  Report Type: 
  Country: None (occurrence: None)
  Receive Date: 20110406
  Receipt Date: 20110331
  Transmission Date: 20111010
  Serious: Yes (Other)
  Sender: FDA-Public Use
  Company Number: FI-BRISTOL-MYERS SQUIBB COMPANY-15592249

PATIENT
  Age: 61 Year
  Sex: Female

DRUGS (5)
  1. CHOLESTEROL MEDICATION [Concomitant]
  2. METFOREM [Concomitant]
     Dosage: 3DF=METFOREM 500MG 3TABLETS DAILY(DOSE INCREASED)THEN DOSE REDUCED 2TAB/D ON 08MAR11
  3. ONGLYZA [Suspect]
     Indication: TYPE 2 DIABETES MELLITUS
     Dosage: DRUG INTERRUPTED +RESTARTED AND THEN REDUCED.STARTED BETWEEN 02FEB AND 17FEB11.
     Dates: start: 20110201
  4. SIMVASTATIN [Concomitant]
     Dosage: TABLET
  5. SERTRALINE HYDROCHLORIDE [Concomitant]

REACTIONS (2)
  - EAR DISCOMFORT [None]
  - HEARING IMPAIRED [None]
